FAERS Safety Report 4297755-6 (Version None)
Quarter: 2004Q1

REPORT INFORMATION
  Report Type: 
  Country: None (occurrence: None)
  Receive Date: 20040217
  Receipt Date: 20040217
  Transmission Date: 20041129
  Serious: Yes (Other)
  Sender: FDA-Public Use
  Company Number: None

PATIENT
  Sex: Male

DRUGS (2)
  1. I-131 [Suspect]
     Indication: ANAPLASTIC ASTROCYTOMA
     Dosage: 150 MCI
     Dates: start: 20031212
  2. MURINE 81C6 (BB-IND 2692) [Concomitant]
     Indication: ANAPLASTIC ASTROCYTOMA
     Dosage: 20 MG
     Dates: start: 20031212

REACTIONS (3)
  - BRAIN OEDEMA [None]
  - GRAND MAL CONVULSION [None]
  - PROCEDURAL SITE REACTION [None]
